FAERS Safety Report 5508601-4 (Version None)
Quarter: 2007Q4

REPORT INFORMATION
  Report Type: 
  Country: None (occurrence: None)
  Receive Date: 20071105
  Receipt Date: 20071029
  Transmission Date: 20080405
  Serious: Yes (Disabling)
  Sender: FDA-Public Use
  Company Number: 2007SP022039

PATIENT
  Age: 43 Year
  Sex: Male
  Weight: 82 kg

DRUGS (12)
  1. TEMODAL [Suspect]
     Indication: GLIOBLASTOMA MULTIFORME
     Dosage: 150 MG/M2; QD; PO
     Route: 048
     Dates: start: 20061204, end: 20061208
  2. TEMODAL [Suspect]
     Indication: GLIOBLASTOMA MULTIFORME
     Dosage: 150 MG/M2; QD; PO
     Route: 048
     Dates: start: 20050105, end: 20070109
  3. TEMODAL [Suspect]
     Indication: GLIOBLASTOMA MULTIFORME
     Dosage: 150 MG/M2; QD; PO
     Route: 048
     Dates: start: 20070205, end: 20070209
  4. TEMODAL [Suspect]
     Indication: GLIOBLASTOMA MULTIFORME
     Dosage: 150 MG/M2; QD; PO
     Route: 048
     Dates: start: 20070320, end: 20070324
  5. KYTRIL [Concomitant]
  6. PHENYTOIN SODIUM CAP [Concomitant]
  7. RINDERON [Concomitant]
  8. TEGRETOL [Concomitant]
  9. GRAN [Concomitant]
  10. CEFAMEZIN [Concomitant]
  11. STRONGER NEO MINOPHAGEN C [Concomitant]
  12. SULPERAZON [Concomitant]

REACTIONS (1)
  - CEREBRAL INFARCTION [None]
